FAERS Safety Report 19706553 (Version 1)
Quarter: 2021Q3

REPORT INFORMATION
  Report Type: Spontaneous
  Country: US (occurrence: US)
  Receive Date: 20210816
  Receipt Date: 20210816
  Transmission Date: 20211014
  Serious: No
  Sender: FDA-Public Use
  Company Number: None

PATIENT
  Age: 75 Year
  Sex: Male

DRUGS (1)
  1. PACLITAXEL (PACLITAXEL 6MG/ML INJ,CONC,IV) [Suspect]
     Active Substance: PACLITAXEL
     Indication: LUNG NEOPLASM MALIGNANT
     Route: 042
     Dates: start: 20210429, end: 20210429

REACTIONS (10)
  - Hypersensitivity [None]
  - Pain [None]
  - Infusion related reaction [None]
  - Chest pain [None]
  - Arthralgia [None]
  - Depressed level of consciousness [None]
  - Angina pectoris [None]
  - Back pain [None]
  - Cardio-respiratory arrest [None]
  - Somnolence [None]

NARRATIVE: CASE EVENT DATE: 20210429
